FAERS Safety Report 6819604-1 (Version None)
Quarter: 2010Q3

REPORT INFORMATION
  Report Type: 
  Country: None (occurrence: None)
  Receive Date: 20100701
  Receipt Date: 20091228
  Transmission Date: 20110219
  Serious: No
  Sender: FDA-Public Use
  Company Number: US-TEVA-219645USA

PATIENT
  Sex: Male
  Weight: 74.91 kg

DRUGS (2)
  1. AZILECT [Suspect]
     Indication: PARKINSON'S DISEASE
     Route: 048
     Dates: start: 20060901, end: 20091201
  2. SINEMET [Suspect]

REACTIONS (1)
  - ATRIAL FIBRILLATION [None]
